FAERS Safety Report 25674899 (Version 1)
Quarter: 2025Q3

REPORT INFORMATION
  Report Type: Spontaneous
  Country: US (occurrence: US)
  Receive Date: 20250813
  Receipt Date: 20250813
  Transmission Date: 20251020
  Serious: No
  Sender: GLAXOSMITHKLINE
  Company Number: US-GSK-US2025AMR096367

PATIENT

DRUGS (4)
  1. NUCALA [Suspect]
     Active Substance: MEPOLIZUMAB
     Indication: Asthma
  2. NUCALA [Suspect]
     Active Substance: MEPOLIZUMAB
     Indication: Benign breast neoplasm
  3. NUCALA [Suspect]
     Active Substance: MEPOLIZUMAB
     Indication: Pelvic pain
  4. NUCALA [Suspect]
     Active Substance: MEPOLIZUMAB
     Indication: Perineal pain

REACTIONS (1)
  - Off label use [Unknown]
